FAERS Safety Report 9162293 (Version 1)
Quarter: 2013Q1

REPORT INFORMATION
  Report Type: Spontaneous
  Country: US (occurrence: None)
  Receive Date: 20130222
  Receipt Date: 20130222
  Transmission Date: 20140127
  Serious: Yes (Other)
  Sender: FDA-Public Use
  Company Number: IPC201302-000049

PATIENT
  Age: 78 Year
  Sex: Male
  Weight: 70.31 kg

DRUGS (1)
  1. HYDROCHLOROTHIAZIDE [Suspect]
     Indication: HYPERTENSION
     Dosage: ABOUT A YEAR OR TWO
     Route: 048

REACTIONS (2)
  - Coeliac disease [None]
  - Product quality issue [None]
